FAERS Safety Report 25396457 (Version 3)
Quarter: 2025Q2

REPORT INFORMATION
  Report Type: Spontaneous
  Country: NL (occurrence: NL)
  Receive Date: 20250604
  Receipt Date: 20250620
  Transmission Date: 20250717
  Serious: Yes (Death, Other)
  Sender: SANDOZ
  Company Number: NL-STRIDES NORDIC APS-2025SP006613

PATIENT
  Age: 41 Year
  Sex: Male

DRUGS (6)
  1. AZATHIOPRINE [Suspect]
     Active Substance: AZATHIOPRINE
     Indication: Secondary amyloidosis
     Route: 065
  2. AZATHIOPRINE [Suspect]
     Active Substance: AZATHIOPRINE
     Indication: PSTPIP1-associated myeloid-related proteinaemia inflammatory syndrome
  3. COLCHICINE [Suspect]
     Active Substance: COLCHICINE
     Indication: Secondary amyloidosis
     Route: 065
  4. COLCHICINE [Suspect]
     Active Substance: COLCHICINE
     Indication: PSTPIP1-associated myeloid-related proteinaemia inflammatory syndrome
  5. PREDNISOLONE [Suspect]
     Active Substance: PREDNISOLONE
     Indication: Secondary amyloidosis
     Route: 065
  6. PREDNISOLONE [Suspect]
     Active Substance: PREDNISOLONE
     Indication: PSTPIP1-associated myeloid-related proteinaemia inflammatory syndrome

REACTIONS (3)
  - Drug ineffective [Fatal]
  - Renal failure [Unknown]
  - Drug ineffective for unapproved indication [Unknown]
